FAERS Safety Report 10528437 (Version 1)
Quarter: 2014Q4

REPORT INFORMATION
  Report Type: Spontaneous
  Country: US (occurrence: None)
  Receive Date: 20141017
  Receipt Date: 20141017
  Transmission Date: 20150528
  Serious: No
  Sender: FDA-Public Use
  Company Number: None

PATIENT
  Sex: Male

DRUGS (3)
  1. ALBUTEROL. [Suspect]
     Active Substance: ALBUTEROL
  2. VENTOLIN [Suspect]
     Active Substance: ALBUTEROL SULFATE
  3. GENERIC FOR VALIUM [Suspect]
     Active Substance: DIAZEPAM
     Dosage: 1 TABLET

REACTIONS (5)
  - Hot flush [None]
  - Drug ineffective [None]
  - Drug effect variable [None]
  - Product quality issue [None]
  - Product substitution issue [None]
